FAERS Safety Report 21701305 (Version 1)
Quarter: 2022Q4

REPORT INFORMATION
  Report Type: Spontaneous
  Country: US (occurrence: None)
  Receive Date: 20221208
  Receipt Date: 20221208
  Transmission Date: 20230112
  Serious: Yes (Life-Threatening, Hospitalization)
  Sender: FDA-Public Use
  Company Number: None

PATIENT
  Age: 48 Year
  Sex: Female
  Weight: 47.25 kg

DRUGS (1)
  1. MOTEGRITY [Suspect]
     Active Substance: PRUCALOPRIDE SUCCINATE
     Indication: Irritable bowel syndrome
     Dates: start: 20220502, end: 20221014

REACTIONS (5)
  - Back pain [None]
  - Therapy interrupted [None]
  - Dyspepsia [None]
  - Arteriospasm coronary [None]
  - Myocardial infarction [None]

NARRATIVE: CASE EVENT DATE: 20221127
